FAERS Safety Report 13459358 (Version 1)
Quarter: 2017Q2

REPORT INFORMATION
  Report Type: Spontaneous
  Country: IT (occurrence: IT)
  Receive Date: 20170419
  Receipt Date: 20170419
  Transmission Date: 20170830
  Serious: Yes (Other)
  Sender: FDA-Public Use
  Company Number: PHHY2017IT054621

PATIENT
  Age: 79 Year
  Sex: Male
  Weight: 56 kg

DRUGS (3)
  1. MIRTAZAPINE. [Suspect]
     Active Substance: MIRTAZAPINE
     Indication: DEPRESSION
     Dosage: 30 MG, QD
     Route: 048
     Dates: start: 20170208, end: 20170303
  2. PYRIDOSTIGMINE [Concomitant]
     Active Substance: PYRIDOSTIGMINE
     Indication: PRODUCT USED FOR UNKNOWN INDICATION
     Dosage: 420 MG, UNK
     Route: 048
  3. PREDNISONE. [Concomitant]
     Active Substance: PREDNISONE
     Indication: PRODUCT USED FOR UNKNOWN INDICATION
     Dosage: 25 MG, UNK
     Route: 048

REACTIONS (3)
  - Confusional state [Recovered/Resolved]
  - Psychomotor hyperactivity [Recovered/Resolved]
  - Tremor [Recovered/Resolved]

NARRATIVE: CASE EVENT DATE: 20170302
